FAERS Safety Report 4535653-0 (Version None)
Quarter: 2004Q4

REPORT INFORMATION
  Report Type: 
  Country: None (occurrence: None)
  Receive Date: 20041222
  Receipt Date: 20041222
  Transmission Date: 20050328
  Serious: Yes (Hospitalization, Disabling)
  Sender: FDA-Public Use
  Company Number: None

PATIENT
  Age: 43 Year
  Sex: Female

DRUGS (2)
  1. NIFEDIPINE , NIFEDAC 30 MG TWICE DAILY TEVA USA [Suspect]
     Indication: BLOOD PRESSURE
     Dosage: 2 TIMES DAILY
     Dates: start: 19991222, end: 20010210
  2. NIFEDIPINE , NIFEDAC 30 MG TWICE DAILY TEVA USA [Suspect]
     Indication: BLOOD PRESSURE
     Dosage: 2 TIMES DAILY
     Dates: start: 20011201, end: 20010601

REACTIONS (9)
  - ARTHROPATHY [None]
  - BURNING SENSATION [None]
  - FALSE POSITIVE LABORATORY RESULT [None]
  - GINGIVAL PAIN [None]
  - HYPOAESTHESIA [None]
  - MUSCLE TIGHTNESS [None]
  - PARAESTHESIA [None]
  - RENAL IMPAIRMENT [None]
  - TOOTH LOSS [None]
